FAERS Safety Report 9470361 (Version 23)
Quarter: 2018Q1

REPORT INFORMATION
  Report Type: Spontaneous
  Country: US (occurrence: US)
  Receive Date: 20130822
  Receipt Date: 20180327
  Transmission Date: 20180509
  Serious: Yes (Other)
  Sender: FDA-Public Use
  Company Number: US-SANOFI-AVENTIS-2013SA003716

PATIENT
  Age: 72 Year
  Sex: Female

DRUGS (35)
  1. MULTAQ [Suspect]
     Active Substance: DRONEDARONE
     Indication: ATRIAL FIBRILLATION
     Route: 048
     Dates: start: 201005
  2. MULTAQ [Suspect]
     Active Substance: DRONEDARONE
     Indication: PALPITATIONS
     Route: 048
     Dates: start: 201005
  3. MULTAQ [Suspect]
     Active Substance: DRONEDARONE
     Indication: ATRIAL FIBRILLATION
     Route: 048
     Dates: start: 201005
  4. XANAX [Concomitant]
     Active Substance: ALPRAZOLAM
     Indication: ANXIETY
     Route: 065
  5. MULTAQ [Suspect]
     Active Substance: DRONEDARONE
     Indication: ATRIAL FIBRILLATION
     Route: 048
     Dates: start: 201005
  6. MULTAQ [Suspect]
     Active Substance: DRONEDARONE
     Indication: PALPITATIONS
     Route: 048
     Dates: start: 201005
  7. MULTAQ [Suspect]
     Active Substance: DRONEDARONE
     Indication: ATRIAL FIBRILLATION
     Route: 048
     Dates: start: 201005
  8. MULTAQ [Suspect]
     Active Substance: DRONEDARONE
     Indication: PALPITATIONS
     Route: 048
     Dates: start: 201005
  9. MULTAQ [Suspect]
     Active Substance: DRONEDARONE
     Indication: ATRIAL FIBRILLATION
     Route: 048
     Dates: start: 201005
  10. XANAX [Concomitant]
     Active Substance: ALPRAZOLAM
     Indication: ANXIETY
     Dosage: START DATE 10 YEARS
     Route: 065
  11. CENTRUM SILVER [Concomitant]
     Active Substance: MINERALS\VITAMINS
     Dosage: CENTRUM SILVER FOR WOMEN OVER 50
     Route: 065
  12. ALPRAZOLAM. [Concomitant]
     Active Substance: ALPRAZOLAM
     Indication: ANXIETY
     Route: 065
  13. CRESTOR [Concomitant]
     Active Substance: ROSUVASTATIN CALCIUM
     Route: 065
  14. CALCIUM [Concomitant]
     Active Substance: CALCIUM
     Route: 065
  15. SINTROM [Concomitant]
     Active Substance: ACENOCOUMAROL
     Route: 065
  16. FISH OIL [Concomitant]
     Active Substance: FISH OIL
     Route: 065
  17. MULTAQ [Suspect]
     Active Substance: DRONEDARONE
     Indication: ATRIAL FIBRILLATION
     Route: 048
     Dates: start: 201005
  18. MULTAQ [Suspect]
     Active Substance: DRONEDARONE
     Indication: PALPITATIONS
     Route: 048
     Dates: start: 201005
  19. MULTAQ [Suspect]
     Active Substance: DRONEDARONE
     Indication: ATRIAL FIBRILLATION
     Route: 048
     Dates: start: 201005
  20. MULTAQ [Suspect]
     Active Substance: DRONEDARONE
     Indication: PALPITATIONS
     Route: 048
     Dates: start: 201005
  21. MULTAQ [Suspect]
     Active Substance: DRONEDARONE
     Indication: ATRIAL FIBRILLATION
     Route: 048
     Dates: start: 201005
  22. PRILOSEC [Suspect]
     Active Substance: OMEPRAZOLE MAGNESIUM
     Route: 065
  23. ASPIRIN. [Concomitant]
     Active Substance: ASPIRIN
     Route: 065
  24. CALTRATE [Concomitant]
     Active Substance: CALCIUM CARBONATE
     Route: 065
  25. MULTAQ [Suspect]
     Active Substance: DRONEDARONE
     Indication: PALPITATIONS
     Route: 048
     Dates: start: 201005
  26. MULTAQ [Suspect]
     Active Substance: DRONEDARONE
     Indication: ATRIAL FIBRILLATION
     Route: 048
     Dates: start: 201005
  27. MULTAQ [Suspect]
     Active Substance: DRONEDARONE
     Indication: PALPITATIONS
     Route: 048
     Dates: start: 201005
  28. CRESTOR [Concomitant]
     Active Substance: ROSUVASTATIN CALCIUM
     Indication: BLOOD CHOLESTEROL
     Route: 065
  29. MIRALAX [Concomitant]
     Active Substance: POLYETHYLENE GLYCOL 3350
     Indication: GASTROINTESTINAL MOTILITY DISORDER
     Route: 065
     Dates: start: 20140526, end: 20140529
  30. MAGNESIUM CITRATE. [Concomitant]
     Active Substance: MAGNESIUM CITRATE
     Route: 065
     Dates: start: 20140529
  31. MULTAQ [Suspect]
     Active Substance: DRONEDARONE
     Indication: PALPITATIONS
     Route: 048
     Dates: start: 201005
  32. MULTAQ [Suspect]
     Active Substance: DRONEDARONE
     Indication: PALPITATIONS
     Route: 048
     Dates: start: 201005
  33. MULTAQ [Suspect]
     Active Substance: DRONEDARONE
     Indication: PALPITATIONS
     Route: 048
     Dates: start: 201005
  34. MULTAQ [Suspect]
     Active Substance: DRONEDARONE
     Indication: ATRIAL FIBRILLATION
     Route: 048
     Dates: start: 201005
  35. VITAMIN D [Concomitant]
     Active Substance: CHOLECALCIFEROL
     Indication: OSTEOPOROSIS
     Dosage: DOSE:1000 UNIT(S)
     Route: 065

REACTIONS (42)
  - Lower respiratory tract infection [Not Recovered/Not Resolved]
  - Bradycardia [Not Recovered/Not Resolved]
  - Sleep apnoea syndrome [Not Recovered/Not Resolved]
  - Heart valve incompetence [Not Recovered/Not Resolved]
  - Scoliosis [Unknown]
  - Heart rate increased [Unknown]
  - Nervousness [Unknown]
  - Constipation [Not Recovered/Not Resolved]
  - Wheezing [Not Recovered/Not Resolved]
  - Sputum increased [Not Recovered/Not Resolved]
  - Upper respiratory tract infection [Unknown]
  - Tooth disorder [Not Recovered/Not Resolved]
  - Headache [Unknown]
  - Feeling hot [Recovered/Resolved]
  - Cough [Recovering/Resolving]
  - Insomnia [Not Recovered/Not Resolved]
  - Heart rate irregular [Unknown]
  - Gastrooesophageal reflux disease [Unknown]
  - Malaise [Unknown]
  - Back pain [Unknown]
  - Palpitations [Not Recovered/Not Resolved]
  - Dry eye [Unknown]
  - Electrocardiogram QT prolonged [Unknown]
  - Atrial fibrillation [Not Recovered/Not Resolved]
  - Dilatation atrial [Not Recovered/Not Resolved]
  - Tremor [Unknown]
  - Gastric disorder [Not Recovered/Not Resolved]
  - Bundle branch block right [Unknown]
  - Tinnitus [Recovering/Resolving]
  - Increased upper airway secretion [Unknown]
  - Atrioventricular block first degree [Unknown]
  - Condition aggravated [Unknown]
  - Anxiety [Unknown]
  - Blood glucose decreased [Unknown]
  - Feeling abnormal [Unknown]
  - Blood magnesium decreased [Unknown]
  - Urinary tract infection [Unknown]
  - Osteoporosis [Not Recovered/Not Resolved]
  - Pain [Unknown]
  - Chest pain [Recovered/Resolved]
  - Dry mouth [Unknown]
  - Drug dose omission [Unknown]

NARRATIVE: CASE EVENT DATE: 20130313
